FAERS Safety Report 7687567-5 (Version None)
Quarter: 2011Q3

REPORT INFORMATION
  Report Type: 
  Country: None (occurrence: None)
  Receive Date: 20110811
  Receipt Date: 20110801
  Transmission Date: 20111222
  Serious: Yes (Other)
  Sender: FDA-Public Use
  Company Number: MSTR-NO-1006S-0200

PATIENT
  Age: 75 Year
  Sex: Male
  Weight: 47.8 kg

DRUGS (3)
  1. METASTRON [Suspect]
     Indication: METASTATIC PAIN
     Dosage: 95.6 MBQ, SINGLE DOSE, INTRAVENOUS
     Route: 042
     Dates: start: 20080722, end: 20080722
  2. ZOLEDRONIC ACID HYDRATE (ZOLEDRONIC ACID) [Concomitant]
  3. FENTANYL [Concomitant]

REACTIONS (3)
  - NEOPLASM PROGRESSION [None]
  - ANAEMIA [None]
  - PROSTATE CANCER [None]
